FAERS Safety Report 14400910 (Version 1)
Quarter: 2018Q1

REPORT INFORMATION
  Report Type: Report from Study
  Country: JP (occurrence: JP)
  Receive Date: 20180117
  Receipt Date: 20180117
  Transmission Date: 20180509
  Serious: Yes (Hospitalization, Other)
  Sender: FDA-Public Use
  Company Number: JP-VISTAPHARM, INC.-VER201801-000066

PATIENT
  Age: 78 Year
  Sex: Female

DRUGS (4)
  1. FLUVOXAMINE [Suspect]
     Active Substance: FLUVOXAMINE
     Indication: DEMENTIA ALZHEIMER^S TYPE
  2. VALPROIC ACID. [Suspect]
     Active Substance: VALPROIC ACID
     Indication: DEMENTIA ALZHEIMER^S TYPE
  3. MEMANTINE. [Concomitant]
     Active Substance: MEMANTINE
     Indication: DEMENTIA ALZHEIMER^S TYPE
  4. MEMANTINE. [Concomitant]
     Active Substance: MEMANTINE

REACTIONS (2)
  - Akinesia [Recovered/Resolved]
  - Decubitus ulcer [Recovered/Resolved]
